FAERS Safety Report 9148736 (Version 1)
Quarter: 2013Q1

REPORT INFORMATION
  Report Type: Spontaneous
  Country: US (occurrence: None)
  Receive Date: 20130214
  Receipt Date: 20130214
  Transmission Date: 20140127
  Serious: Yes (Death, Hospitalization)
  Sender: FDA-Public Use
  Company Number: 2013HINLIT0008

PATIENT
  Age: 41 Year
  Sex: Male

DRUGS (8)
  1. TENOFOVIR [Suspect]
     Indication: ANTIRETROVIRAL THERAPY
     Route: 048
     Dates: start: 1999
  2. LAMIVUDINE [Suspect]
     Indication: ANTIRETROVIRAL THERAPY
  3. DIDANOSINE [Suspect]
     Indication: ANTIRETROVIRAL THERAPY
     Dates: start: 1999
  4. RITONAVIR [Suspect]
  5. ATAZANAVIR [Suspect]
     Indication: ANTIRETROVIRAL THERAPY
     Dates: start: 1999
  6. ETRAVIRINE [Suspect]
     Indication: ANTIRETROVIRAL THERAPY
  7. RALTEGRAVIR [Suspect]
     Indication: ANTIRETROVIRAL THERAPY
  8. ENFUVIRTIDE [Suspect]
     Indication: ANTIRETROVIRAL THERAPY

REACTIONS (6)
  - Vanishing bile duct syndrome [None]
  - Pneumococcal sepsis [None]
  - Large intestinal obstruction reduction [None]
  - Renal failure [None]
  - Pruritus generalised [None]
  - Hepatosplenomegaly [None]
